FAERS Safety Report 20563909 (Version 1)
Quarter: 2022Q1

REPORT INFORMATION
  Report Type: Report from Study
  Country: BR (occurrence: BR)
  Receive Date: 20220308
  Receipt Date: 20220308
  Transmission Date: 20220423
  Serious: Yes (Other)
  Sender: FDA-Public Use
  Company Number: BR-ABBVIE-22K-020-4304397-00

PATIENT
  Sex: Female
  Weight: 39 kg

DRUGS (3)
  1. RINVOQ [Suspect]
     Active Substance: UPADACITINIB
     Indication: Rheumatoid arthritis
     Route: 048
     Dates: end: 202201
  2. ALENDRONATE SODIUM [Concomitant]
     Active Substance: ALENDRONATE SODIUM
     Indication: Rheumatoid arthritis
     Route: 048
  3. CALCIUM CARBONATE [Concomitant]
     Active Substance: CALCIUM CARBONATE
     Indication: Rheumatoid arthritis
     Route: 048

REACTIONS (9)
  - Emphysema [Recovering/Resolving]
  - Bronchitis [Recovering/Resolving]
  - Tremor [Recovered/Resolved]
  - Gastrointestinal disorder [Unknown]
  - Arrhythmia [Unknown]
  - Anaemia [Unknown]
  - Abdominal discomfort [Unknown]
  - Decreased appetite [Recovered/Resolved]
  - Weight decreased [Unknown]
